FAERS Safety Report 7650291-9 (Version None)
Quarter: 2011Q3

REPORT INFORMATION
  Report Type: 
  Country: None (occurrence: None)
  Receive Date: 20110802
  Receipt Date: 20110728
  Transmission Date: 20111222
  Serious: Yes (Death, Hospitalization, Other)
  Sender: FDA-Public Use
  Company Number: DE-CUBIST-2011S1000492

PATIENT
  Age: 61 Year
  Sex: Male
  Weight: 81 kg

DRUGS (2)
  1. CUBICIN [Suspect]
     Indication: ENDOCARDITIS STAPHYLOCOCCAL
     Route: 042
  2. CUBICIN [Suspect]
     Route: 042

REACTIONS (9)
  - THROMBOCYTOPENIA [None]
  - CARDIAC FAILURE [None]
  - ACTIVATED PARTIAL THROMBOPLASTIN TIME [None]
  - VENTRICULAR FIBRILLATION [None]
  - HEART VALVE INCOMPETENCE [None]
  - BLOOD FIBRINOGEN DECREASED [None]
  - CARDIAC ARREST [None]
  - CARDIAC VALVE VEGETATION [None]
  - INTERNATIONAL NORMALISED RATIO INCREASED [None]
